FAERS Safety Report 5522553-2 (Version None)
Quarter: 2007Q4

REPORT INFORMATION
  Report Type: 
  Country: None (occurrence: None)
  Receive Date: 20071120
  Receipt Date: 20071108
  Transmission Date: 20080405
  Serious: Yes (Other)
  Sender: FDA-Public Use
  Company Number: US-SANOFI-SYNTHELABO-A03200706424

PATIENT
  Sex: Male

DRUGS (2)
  1. ANTIDEPRESSANT [Concomitant]
     Indication: DEPRESSION
     Dosage: UNK
     Route: 065
  2. AMBIEN [Suspect]
     Indication: SLEEP DISORDER
     Dosage: UNK
     Route: 048
     Dates: start: 20061201, end: 20070101

REACTIONS (3)
  - AGGRESSION [None]
  - AMNESIA [None]
  - SOMNAMBULISM [None]
